FAERS Safety Report 9892123 (Version 1)
Quarter: 2014Q1

REPORT INFORMATION
  Report Type: Spontaneous
  Country: US (occurrence: US)
  Receive Date: 20140212
  Receipt Date: 20140212
  Transmission Date: 20141002
  Serious: No
  Sender: FDA-Public Use
  Company Number: US-TEVA-462529USA

PATIENT
  Sex: Female

DRUGS (6)
  1. NUVIGIL [Suspect]
     Dosage: REPORTED AS BOTH 250 MG AND 400 MG EVERY MORNING
     Dates: start: 20140131
  2. NUVIGIL [Suspect]
  3. PROVIGIL [Concomitant]
     Dosage: 400 MILLIGRAM DAILY;
     Route: 048
     Dates: end: 2013
  4. PROVIGIL [Concomitant]
     Dosage: 100 MG EVERY 45 MINS FOR A TOTAL OF 400 MG EVERY MORNING
     Route: 048
     Dates: start: 2013
  5. PROVIGIL [Concomitant]
     Route: 048
     Dates: start: 20140206
  6. MODAFINIL [Concomitant]
     Dosage: 500-600 MG DAILY
     Route: 048
     Dates: start: 201309, end: 2013

REACTIONS (5)
  - Drug ineffective [Unknown]
  - Drug effect decreased [Unknown]
  - Incorrect dose administered [Unknown]
  - Cardiac disorder [Unknown]
  - Cardiac discomfort [Unknown]
